FAERS Safety Report 13054646 (Version 2)
Quarter: 2017Q4

REPORT INFORMATION
  Report Type: Spontaneous
  Country: US (occurrence: US)
  Receive Date: 20161222
  Receipt Date: 20171215
  Transmission Date: 20180320
  Serious: Yes (Hospitalization, Other)
  Sender: FDA-Public Use
  Company Number: US-SAOL THERAPEUTICS-2016SAO01123

PATIENT
  Age: 51 Year
  Sex: Female

DRUGS (5)
  1. BACLOFEN. [Suspect]
     Active Substance: BACLOFEN
     Indication: MUSCLE SPASTICITY
     Dosage: 218.27 ?G, \DAY
     Route: 037
  2. HYDROMORPHONE [Suspect]
     Active Substance: HYDROMORPHONE
     Dosage: 1.212 MG, \DAY
     Route: 037
  3. DILAUDID [Suspect]
     Active Substance: HYDROMORPHONE HYDROCHLORIDE
     Dosage: 1.343 MG, \DAY
     Route: 037
  4. BACLOFEN. [Suspect]
     Active Substance: BACLOFEN
     Indication: MUSCLE SPASTICITY
     Dosage: 241.82 ?G, \DAY
     Route: 037
  5. BACLOFEN. [Suspect]
     Active Substance: BACLOFEN
     Dosage: UNK
     Route: 048

REACTIONS (17)
  - Kidney infection [Not Recovered/Not Resolved]
  - Implant site pruritus [Unknown]
  - Muscle spasms [Unknown]
  - Fatigue [Unknown]
  - Pain [Unknown]
  - Poor venous access [Unknown]
  - Road traffic accident [Unknown]
  - Implant site swelling [Unknown]
  - Sensory disturbance [Unknown]
  - Malaise [Not Recovered/Not Resolved]
  - Muscle contracture [Not Recovered/Not Resolved]
  - Oxygen saturation decreased [Unknown]
  - Complication associated with device [Unknown]
  - Implant site pain [Unknown]
  - Device malfunction [Unknown]
  - Skin burning sensation [Unknown]
  - Cystitis [Not Recovered/Not Resolved]

NARRATIVE: CASE EVENT DATE: 2016
